FAERS Safety Report 5885983-5 (Version None)
Quarter: 2008Q3

REPORT INFORMATION
  Report Type: 
  Country: None (occurrence: None)
  Receive Date: 20080912
  Receipt Date: 20080903
  Transmission Date: 20090109
  Serious: Yes (Life-Threatening, Other)
  Sender: FDA-Public Use
  Company Number: 08H-028-0314867-00

PATIENT
  Age: 29 Year
  Sex: Male

DRUGS (7)
  1. EPINEPHRINE [Suspect]
     Indication: VASOCONSTRICTION
     Dosage: TOPICAL
     Route: 061
  2. METOPROLOL TARTRATE [Suspect]
     Indication: HYPERTENSION
     Dosage: 5 MG, INTRAVENOUS
     Route: 042
  3. PROPOFOL [Concomitant]
  4. FENTANYL-100 [Concomitant]
  5. 2.6% SEVOFLURANE (SEVOFLURANE) [Concomitant]
  6. LIDOCAINE 1% WITH 1:200,000 EPINEPHRINE (OCTOCAINE WITH EPINEPHRINE) [Concomitant]
  7. FUROSEMIDE [Concomitant]

REACTIONS (13)
  - AGITATION [None]
  - BRADYCARDIA [None]
  - CARDIAC ARREST [None]
  - CARDIOGENIC SHOCK [None]
  - ELECTROCARDIOGRAM ST SEGMENT ELEVATION [None]
  - ELECTROMECHANICAL DISSOCIATION [None]
  - FOAMING AT MOUTH [None]
  - HYPERTENSION [None]
  - HYPOTENSION [None]
  - PULMONARY OEDEMA [None]
  - RESPIRATORY DISTRESS [None]
  - SINUS TACHYCARDIA [None]
  - VENTRICULAR DYSFUNCTION [None]
